FAERS Safety Report 9789383 (Version 3)
Quarter: 2014Q1

REPORT INFORMATION
  Report Type: Spontaneous
  Country: IE (occurrence: IE)
  Receive Date: 20131231
  Receipt Date: 20140127
  Transmission Date: 20141002
  Serious: Yes (Other)
  Sender: FDA-Public Use
  Company Number: IE-AMGEN-IRLSP2013090599

PATIENT
  Age: 61 Year
  Sex: Female

DRUGS (4)
  1. PROLIA [Suspect]
     Indication: OSTEOPOROSIS
     Dosage: 60 MG, Q6MO (ONLY ONE DOSE)
     Route: 058
     Dates: start: 20130613
  2. LANSOPRAZOLE [Concomitant]
     Indication: GASTRITIS
     Dosage: 30 MG, OD THEN INCREASED TO BD
     Route: 048
     Dates: start: 20130730, end: 20130903
  3. ESOMEPRAZOLE [Concomitant]
     Indication: GASTRITIS
     Dosage: 40 MG, OD
     Route: 048
     Dates: start: 20130919
  4. CALCIUM/VITAMIN D3 [Concomitant]
     Dosage: 500/500, BID
     Route: 048
     Dates: start: 20130531

REACTIONS (1)
  - Gastrointestinal carcinoma [Not Recovered/Not Resolved]
